FAERS Safety Report 4584400-5 (Version None)
Quarter: 2005Q1

REPORT INFORMATION
  Report Type: 
  Country: None (occurrence: None)
  Receive Date: 20050125
  Receipt Date: 20040830
  Transmission Date: 20050727
  Serious: Yes (Hospitalization, Other)
  Sender: FDA-Public Use
  Company Number: US_010668336

PATIENT
  Age: 82 Year
  Sex: Female
  Weight: 61 kg

DRUGS (8)
  1. EVISTA [Suspect]
     Indication: OSTEOPOROSIS
     Dosage: 60 MG/1 DAY
     Dates: start: 20010419
  2. FORTEO [Suspect]
     Indication: COMPRESSION FRACTURE
     Dosage: 20 UG/1 DAY
     Dates: start: 20031205
  3. FORTEO [Suspect]
     Indication: OSTEOPOROSIS
     Dosage: 20 UG/1 DAY
     Dates: start: 20031205
  4. MULTIVITAMIN NOS (MULTIVITAMIN NOS) [Concomitant]
  5. VIACTIV [Concomitant]
  6. GELATIN [Concomitant]
  7. DRY EYE THERAPY [Concomitant]
  8. LUBRICATING EYE DROPS [Concomitant]

REACTIONS (15)
  - BODY HEIGHT DECREASED [None]
  - BURNING SENSATION [None]
  - COUGH [None]
  - EAR CONGESTION [None]
  - EYE IRRITATION [None]
  - EYE SWELLING [None]
  - EYELID OEDEMA [None]
  - LACRIMATION INCREASED [None]
  - MUSCLE SPASMS [None]
  - OCULAR HYPERAEMIA [None]
  - OEDEMA PERIPHERAL [None]
  - PARANASAL SINUS HYPERSECRETION [None]
  - RHINORRHOEA [None]
  - SEASONAL ALLERGY [None]
  - SPINAL COMPRESSION FRACTURE [None]
